FAERS Safety Report 4275138-2 (Version None)
Quarter: 2004Q1

REPORT INFORMATION
  Report Type: 
  Country: None (occurrence: None)
  Receive Date: 20040121
  Receipt Date: 20040114
  Transmission Date: 20041129
  Serious: Yes (Hospitalization)
  Sender: FDA-Public Use
  Company Number: 200410363US

PATIENT
  Sex: Male

DRUGS (1)
  1. TAXOTERE [Suspect]
     Indication: LUNG NEOPLASM MALIGNANT
     Dosage: DOSE: UNK
     Dates: start: 20031201

REACTIONS (4)
  - DEHYDRATION [None]
  - DEPRESSION [None]
  - PERIPHERAL ISCHAEMIA [None]
  - RASH PRURITIC [None]
